FAERS Safety Report 6292807-3 (Version None)
Quarter: 2009Q3

REPORT INFORMATION
  Report Type: 
  Country: None (occurrence: None)
  Receive Date: 20090731
  Receipt Date: 20090720
  Transmission Date: 20100115
  Serious: Yes (Hospitalization, Other)
  Sender: FDA-Public Use
  Company Number: US-WATSON-2009-05692

PATIENT
  Age: 43 Year
  Sex: Female

DRUGS (1)
  1. INFED [Suspect]
     Indication: IRON DEFICIENCY ANAEMIA
     Dosage: 1000 MG, OVER 2 HOURS
     Route: 042
     Dates: start: 20040101, end: 20080919

REACTIONS (13)
  - COGNITIVE DISORDER [None]
  - DIPLOPIA [None]
  - DISTURBANCE IN ATTENTION [None]
  - DYSPNOEA [None]
  - FATIGUE [None]
  - GAIT DISTURBANCE [None]
  - HAEMOSIDEROSIS [None]
  - HEADACHE [None]
  - HEPATIC SIDEROSIS [None]
  - MENINGITIS ASEPTIC [None]
  - MUSCULAR WEAKNESS [None]
  - OROPHARYNGEAL PAIN [None]
  - PAIN IN EXTREMITY [None]
